FAERS Safety Report 15737177 (Version 1)
Quarter: 2018Q4

REPORT INFORMATION
  Report Type: Spontaneous
  Country: US (occurrence: US)
  Receive Date: 20181218
  Receipt Date: 20181218
  Transmission Date: 20190205
  Serious: No
  Sender: FDA-Public Use
  Company Number: US-SA-2018SA342106

PATIENT
  Sex: Female

DRUGS (1)
  1. DUPIXENT [Suspect]
     Active Substance: DUPILUMAB
     Dosage: UNK
     Route: 058

REACTIONS (7)
  - Inflammation [Unknown]
  - Eye swelling [Unknown]
  - Rash [Unknown]
  - Hypoaesthesia [Unknown]
  - Feeling cold [Unknown]
  - Erythema [Unknown]
  - Ear swelling [Unknown]
